FAERS Safety Report 6327040-X (Version None)
Quarter: 2009Q3

REPORT INFORMATION
  Report Type: 
  Country: None (occurrence: None)
  Receive Date: 20090825
  Receipt Date: 20090819
  Transmission Date: 20100115
  Serious: Yes (Other)
  Sender: FDA-Public Use
  Company Number: US-BAYER-200911973BCC

PATIENT
  Age: 84 Year
  Sex: Male
  Weight: 68 kg

DRUGS (6)
  1. ALEVE [Suspect]
     Indication: BACK PAIN
     Dosage: TOTAL DAILY DOSE: 220 MG  UNIT DOSE: 220 MG
     Route: 048
     Dates: start: 20081101
  2. ALEVE [Suspect]
     Dosage: TOTAL DAILY DOSE: 440 MG  UNIT DOSE: 220 MG
     Route: 048
     Dates: start: 20090630
  3. EQUATE MULTIVITAMIN [Concomitant]
     Route: 065
  4. FLOMAX [Concomitant]
     Route: 065
  5. UNKNOWN VITAMIN C [Concomitant]
     Route: 065
  6. EQUATE CALCIUM [Concomitant]
     Route: 065

REACTIONS (2)
  - BENIGN GASTROINTESTINAL NEOPLASM [None]
  - RECTAL HAEMORRHAGE [None]
